FAERS Safety Report 7000284-X (Version None)
Quarter: 2010Q3

REPORT INFORMATION
  Report Type: 
  Country: None (occurrence: None)
  Receive Date: 20100920
  Receipt Date: 20100503
  Transmission Date: 20110219
  Serious: No
  Sender: FDA-Public Use
  Company Number: US-ASTRAZENECA-2010SE19999

PATIENT
  Age: 19 Year
  Sex: Male
  Weight: 74.8 kg

DRUGS (4)
  1. SEROQUEL XR [Suspect]
     Indication: BIPOLAR DISORDER
     Route: 048
     Dates: start: 20081201
  2. SEROQUEL XR [Suspect]
     Indication: SOMNOLENCE
     Route: 048
     Dates: start: 20081201
  3. RITALIN [Concomitant]
  4. FLUOXETINE [Concomitant]

REACTIONS (3)
  - CATATONIA [None]
  - DRUG DOSE OMISSION [None]
  - OVERDOSE [None]
